FAERS Safety Report 7450576-5 (Version None)
Quarter: 2011Q2

REPORT INFORMATION
  Report Type: 
  Country: None (occurrence: None)
  Receive Date: 20110429
  Receipt Date: 20110429
  Transmission Date: 20111010
  Serious: Yes (Death)
  Sender: FDA-Public Use
  Company Number: None

PATIENT
  Age: 60 Year
  Sex: Male

DRUGS (7)
  1. CLONIDINE [Concomitant]
  2. CYMBALTA [Concomitant]
  3. WARFARIN SODIUM [Suspect]
  4. INHALERS [Concomitant]
  5. PRADAXA [Suspect]
     Indication: CEREBROVASCULAR ACCIDENT PROPHYLAXIS
     Dosage: 150 MG ONCE A DAY ORALLY
     Route: 048
     Dates: start: 20110405, end: 20110405
  6. PRADAXA [Suspect]
     Indication: ANTICOAGULANT THERAPY
     Dosage: 150 MG ONCE A DAY ORALLY
     Route: 048
     Dates: start: 20110405, end: 20110405
  7. DILTIAZEM [Concomitant]

REACTIONS (2)
  - SUBDURAL HAEMATOMA [None]
  - UNRESPONSIVE TO STIMULI [None]
